FAERS Safety Report 13132485 (Version 1)
Quarter: 2017Q1

REPORT INFORMATION
  Report Type: Spontaneous
  Country: US (occurrence: US)
  Receive Date: 20170120
  Receipt Date: 20170120
  Transmission Date: 20170428
  Serious: No
  Sender: FDA-Public Use
  Company Number: US-TEVA-670464USA

PATIENT
  Sex: Male

DRUGS (1)
  1. METFORMIN [Suspect]
     Active Substance: METFORMIN HYDROCHLORIDE
     Route: 065

REACTIONS (5)
  - Urogenital disorder [Unknown]
  - Drug prescribing error [Unknown]
  - Blood glucose increased [Unknown]
  - Drug ineffective [Unknown]
  - Gastrointestinal disorder [Unknown]
